FAERS Safety Report 24689230 (Version 3)
Quarter: 2025Q1

REPORT INFORMATION
  Report Type: Spontaneous
  Country: US (occurrence: US)
  Receive Date: 20241203
  Receipt Date: 20250205
  Transmission Date: 20250408
  Serious: No
  Sender: ALEXION PHARMACEUTICALS
  Company Number: US-AstraZeneca-CH-00759650AP

PATIENT

DRUGS (1)
  1. TEZSPIRE [Suspect]
     Active Substance: TEZEPELUMAB-EKKO
     Route: 065

REACTIONS (6)
  - Injection site haemorrhage [Unknown]
  - Injury associated with device [Unknown]
  - Accidental exposure to product [Unknown]
  - Product dose omission issue [Unknown]
  - Device issue [Unknown]
  - Device difficult to use [Unknown]
